FAERS Safety Report 13050071 (Version 7)
Quarter: 2017Q2

REPORT INFORMATION
  Report Type: Report from Study
  Country: US (occurrence: US)
  Receive Date: 20161221
  Receipt Date: 20170420
  Transmission Date: 20170830
  Serious: Yes (Other)
  Sender: FDA-Public Use
  Company Number: US-ROCHE-1864625

PATIENT
  Age: 75 Year
  Sex: Male
  Weight: 83.5 kg

DRUGS (12)
  1. PREDNISONE. [Suspect]
     Active Substance: PREDNISONE
     Dosage: EVERY DAY
     Route: 048
     Dates: start: 20170221, end: 20170305
  2. TOCILIZUMAB [Suspect]
     Active Substance: TOCILIZUMAB
     Indication: TEMPORAL ARTERITIS
     Dosage: DOSE OF LAST OPEN TOCILIZUMAB ADMINISTERED: 162 MG, DATE OF MOST RECENT DOSE OF OPEN LABEL TOCILIZUM
     Route: 058
     Dates: start: 20151119
  3. PREDNISONE. [Suspect]
     Active Substance: PREDNISONE
     Dosage: EVERY DAY
     Route: 048
     Dates: start: 20170218, end: 20170220
  4. PREDNISONE. [Suspect]
     Active Substance: PREDNISONE
     Indication: TEMPORAL ARTERITIS
     Route: 048
     Dates: start: 20140714
  5. PREDNISONE. [Suspect]
     Active Substance: PREDNISONE
     Dosage: EVERY DAY
     Route: 048
     Dates: start: 20170306
  6. BLINDED PREDNISONE [Suspect]
     Active Substance: PREDNISONE
     Indication: TEMPORAL ARTERITIS
     Dosage: DATE OF MOST RECENT DOSE OF BLINDED PREDNISONE PRIOR TO AE ONSET: 12/JUL/2015
     Route: 048
     Dates: start: 20140804
  7. ASPIRIN. [Concomitant]
     Active Substance: ASPIRIN
     Route: 048
     Dates: start: 2000
  8. CARVEDILOL. [Concomitant]
     Active Substance: CARVEDILOL
     Route: 048
     Dates: start: 2011
  9. RANITIDINE HCL [Concomitant]
     Active Substance: RANITIDINE HYDROCHLORIDE
     Route: 048
     Dates: start: 2004
  10. RIVAROXABAN [Concomitant]
     Active Substance: RIVAROXABAN
     Route: 048
     Dates: start: 20150901, end: 201603
  11. BLINDED TOCILIZUMAB [Suspect]
     Active Substance: TOCILIZUMAB
     Indication: TEMPORAL ARTERITIS
     Dosage: DATE OF MOST RECENT DOSE OF BLINDED TOCILIZUMAB PRIOR TO AE ONSET: 09/JUL/2015
     Route: 058
     Dates: start: 20140714
  12. ATORVASTATIN [Concomitant]
     Active Substance: ATORVASTATIN
     Route: 048
     Dates: start: 2011

REACTIONS (2)
  - White blood cell disorder [Recovered/Resolved]
  - Lymphocytosis [Recovered/Resolved]

NARRATIVE: CASE EVENT DATE: 20161103
